FAERS Safety Report 20586260 (Version 1)
Quarter: 2022Q1

REPORT INFORMATION
  Report Type: Spontaneous
  Country: US (occurrence: US)
  Receive Date: 20220313
  Receipt Date: 20220313
  Transmission Date: 20220424
  Serious: No
  Sender: FDA-Public Use
  Company Number: US-SA-SAC20220307001755

PATIENT
  Age: 53 Year
  Sex: Female

DRUGS (30)
  1. KEVZARA [Suspect]
     Active Substance: SARILUMAB
     Indication: Rheumatoid arthritis
     Dosage: 200 MG, QOW
     Route: 058
     Dates: start: 20211212
  2. LEVOTHYROXINE [Concomitant]
     Active Substance: LEVOTHYROXINE
  3. KENALOG [Concomitant]
     Active Substance: TRIAMCINOLONE ACETONIDE
  4. SPIRONOLACTONE [Concomitant]
     Active Substance: SPIRONOLACTONE
  5. CELESTONE [Concomitant]
     Active Substance: BETAMETHASONE
  6. FUROSEMIDE [Concomitant]
     Active Substance: FUROSEMIDE
  7. LACTULOSE [Concomitant]
     Active Substance: LACTULOSE
  8. CYANOCOBALAMIN [Concomitant]
     Active Substance: CYANOCOBALAMIN
     Dosage: UNK
  9. VITAMIN B [Concomitant]
     Active Substance: VITAMIN B
     Dosage: UNK
  10. CRANBERRY [Concomitant]
     Active Substance: CRANBERRY
  11. GENERLAC [Concomitant]
     Active Substance: LACTULOSE
  12. POTASSIUM CHLORIDE [Concomitant]
     Active Substance: POTASSIUM CHLORIDE
     Dosage: UNK
  13. PREDNISONE [Concomitant]
     Active Substance: PREDNISONE
  14. TIZANIDINE HYDROCHLORIDE [Concomitant]
     Active Substance: TIZANIDINE HYDROCHLORIDE
  15. FISH OIL [Concomitant]
     Active Substance: FISH OIL
  16. SUCRALFATE [Concomitant]
     Active Substance: SUCRALFATE
     Dosage: UNK
  17. METOLAZONE [Concomitant]
     Active Substance: METOLAZONE
  18. SIMVASTATIN [Concomitant]
     Active Substance: SIMVASTATIN
  19. SPIRONOLACTONE [Concomitant]
     Active Substance: SPIRONOLACTONE
  20. FUROSEMIDE [Concomitant]
     Active Substance: FUROSEMIDE
  21. RETINOL [Concomitant]
     Active Substance: RETINOL
  22. POMEGRANATE [PUNICA GRANATUM] [Concomitant]
  23. FLAXSEED [Concomitant]
     Active Substance: FLAX SEED
  24. DIETARY SUPPLEMENT\HERBALS\MILK THISTLE [Concomitant]
     Active Substance: DIETARY SUPPLEMENT\HERBALS\MILK THISTLE
  25. METOCLOPRAMIDE HYDROCHLORIDE [Concomitant]
     Active Substance: METOCLOPRAMIDE HYDROCHLORIDE
     Dosage: UNK
  26. KLOR-CON M20 [Concomitant]
     Active Substance: POTASSIUM CHLORIDE
     Dosage: UNK
  27. COD LIVER OIL [Concomitant]
     Active Substance: COD LIVER OIL
  28. COD [CODEINE PHOSPHATE] [Concomitant]
  29. VALIUM [Concomitant]
     Active Substance: DIAZEPAM
  30. SUPER B COMPLEX [ASCORBIC ACID;BIOTIN;CALCIUM PANTOTHENATE;CYANOCOBALA [Concomitant]

REACTIONS (1)
  - Drug ineffective [Unknown]
